FAERS Safety Report 5574259-1 (Version None)
Quarter: 2007Q4

REPORT INFORMATION
  Report Type: 
  Country: None (occurrence: None)
  Receive Date: 20071220
  Receipt Date: 20071212
  Transmission Date: 20080405
  Serious: Yes (Death)
  Sender: FDA-Public Use
  Company Number: 20074368

PATIENT
  Age: 34 Year
  Sex: Male

DRUGS (1)
  1. LIORESAL [Suspect]
     Indication: MUSCLE SPASTICITY
     Dosage: 490.2 MCG, DAILY, INTRATHECAL
     Route: 037

REACTIONS (2)
  - ANOXIC ENCEPHALOPATHY [None]
  - CHOKING [None]
